FAERS Safety Report 7746059-5 (Version None)
Quarter: 2011Q3

REPORT INFORMATION
  Report Type: 
  Country: None (occurrence: None)
  Receive Date: 20110913
  Receipt Date: 20110907
  Transmission Date: 20111222
  Serious: No
  Sender: FDA-Public Use
  Company Number: JP-B.I. PHARMACEUTICALS,INC./RIDGEFIELD-2011-BP-20692NB

PATIENT
  Sex: Female

DRUGS (8)
  1. VERAPAMIL HCL [Concomitant]
     Dosage: NR
     Route: 065
     Dates: start: 20110824
  2. ALDACTONE [Concomitant]
     Route: 048
  3. PRADAXA [Suspect]
     Indication: ATRIAL FIBRILLATION
     Dosage: 220 MG
     Route: 048
  4. VERAPAMIL HCL [Concomitant]
     Route: 065
     Dates: start: 20110819
  5. PHENYTOIN SODIUM CAP [Concomitant]
     Route: 048
  6. LANIRAPID [Concomitant]
     Route: 065
  7. DIART [Concomitant]
     Dosage: 30 MG
     Route: 048
  8. FAMOTIDINE [Concomitant]
     Dosage: 10 MG
     Route: 048

REACTIONS (1)
  - BLOOD GLUCOSE DECREASED [None]
